FAERS Safety Report 10525159 (Version 1)
Quarter: 2014Q4

REPORT INFORMATION
  Report Type: Spontaneous
  Country: PT (occurrence: PT)
  Receive Date: 20141017
  Receipt Date: 20141017
  Transmission Date: 20150528
  Serious: Yes (Other)
  Sender: FDA-Public Use
  Company Number: PT-TEVA-515177ISR

PATIENT
  Age: 21 Year
  Sex: Female
  Weight: 63 kg

DRUGS (2)
  1. COTRIMOXAZOL RATIOPHARM [Suspect]
     Active Substance: SULFAMETHOXAZOLE\TRIMETHOPRIM
     Indication: PYELONEPHRITIS ACUTE
     Dosage: 960 MILLIGRAM DAILY;
     Route: 048
     Dates: start: 20140831, end: 20140909
  2. MINIGESTE [Concomitant]
     Active Substance: ETHINYL ESTRADIOL\GESTODENE
     Indication: ORAL CONTRACEPTION
     Route: 048
     Dates: start: 20140813

REACTIONS (5)
  - Pyrexia [Recovered/Resolved]
  - Lymphopenia [Recovered/Resolved]
  - Eosinophilia [Recovered/Resolved]
  - Leukopenia [Recovered/Resolved]
  - Lymphadenitis [Recovered/Resolved]

NARRATIVE: CASE EVENT DATE: 20140908
